FAERS Safety Report 8850927 (Version 3)
Quarter: 2013Q2

REPORT INFORMATION
  Report Type: Spontaneous
  Country: JP (occurrence: JP)
  Receive Date: 20121019
  Receipt Date: 20130524
  Transmission Date: 20140414
  Serious: Yes (Other)
  Sender: FDA-Public Use
  Company Number: JP-BAYER-201012403BYL

PATIENT
  Age: 75 Year
  Sex: Female
  Weight: 42 kg

DRUGS (13)
  1. NEXAVAR [Suspect]
     Indication: HEPATOCELLULAR CARCINOMA
     Dosage: DAILY DOSE 400 MG
     Route: 048
     Dates: start: 20100511, end: 20110523
  2. NEXAVAR [Suspect]
     Indication: HEPATOCELLULAR CARCINOMA
     Dosage: DAILY DOSE 800 MG
     Route: 048
     Dates: start: 20110524, end: 20120625
  3. NEXAVAR [Suspect]
     Indication: HEPATOCELLULAR CARCINOMA
     Dosage: DAILY DOSE 400 MG
     Route: 048
     Dates: start: 20120713, end: 20130112
  4. NEXAVAR [Suspect]
     Indication: HEPATOCELLULAR CARCINOMA
     Dosage: 600 MG DAILY
     Route: 048
     Dates: start: 20130113, end: 20130402
  5. MIRIPLATIN [Concomitant]
     Dosage: UNK
  6. URSO [Concomitant]
     Indication: PROPHYLAXIS
     Dosage: DAILY DOSE 600 MG
     Route: 048
  7. GLAKAY [Concomitant]
     Dosage: DAILY DOSE 45 MG
     Route: 048
  8. TAKEPRON [Concomitant]
     Dosage: DAILY DOSE 15 MG
     Route: 048
  9. BEZATOL [Concomitant]
     Indication: HYPERLIPIDAEMIA
     Dosage: DAILY DOSE 400 MG
     Route: 048
  10. RHYTHMY [Concomitant]
     Indication: INSOMNIA
     Dosage: DAILY DOSE 1.5 MG
     Route: 048
  11. TERNELIN [Concomitant]
     Indication: HEADACHE
     Dosage: DAILY DOSE 1 MG
     Route: 048
  12. LOXONIN [Concomitant]
     Indication: HEADACHE
     Dosage: DAILY DOSE 60 MG
     Route: 048
  13. MUCOSTA [Concomitant]
     Indication: PROPHYLAXIS
     Dosage: DAILY DOSE 100 MG
     Route: 048

REACTIONS (4)
  - Erythema multiforme [Recovered/Resolved]
  - Hypertension [Recovering/Resolving]
  - Dysgeusia [Recovered/Resolved]
  - Diarrhoea [Recovering/Resolving]
